FAERS Safety Report 6477794-7 (Version None)
Quarter: 2009Q4

REPORT INFORMATION
  Report Type: 
  Country: None (occurrence: None)
  Receive Date: 20091207
  Receipt Date: 20091204
  Transmission Date: 20100525
  Serious: Yes (Death)
  Sender: FDA-Public Use
  Company Number: JP-JNJFOC-20091201839

PATIENT

DRUGS (3)
  1. DUROTEP MT PATCH [Suspect]
     Indication: CANCER PAIN
     Route: 062
     Dates: start: 20091119
  2. MORPHINE HYDROCHLORIDE [Suspect]
     Indication: DRUG USE FOR UNKNOWN INDICATION
     Route: 065
  3. OXYCONTIN [Suspect]
     Indication: DRUG USE FOR UNKNOWN INDICATION
     Route: 048

REACTIONS (2)
  - GASTRIC CANCER [None]
  - RESPIRATORY DEPRESSION [None]
